FAERS Safety Report 7742940-1 (Version None)
Quarter: 2011Q3

REPORT INFORMATION
  Report Type: 
  Country: None (occurrence: None)
  Receive Date: 20110908
  Receipt Date: 20110908
  Transmission Date: 20111222
  Serious: Yes (Disabling)
  Sender: FDA-Public Use
  Company Number: None

PATIENT
  Sex: Female
  Weight: 72.5755 kg

DRUGS (2)
  1. AVINZA [Suspect]
     Indication: BACK PAIN
     Dosage: 90 MG TID PAST 3 YEARS
  2. AVINZA [Suspect]
     Indication: NEUROPATHY PERIPHERAL
     Dosage: 90 MG TID PAST 3 YEARS

REACTIONS (1)
  - DENTAL CARIES [None]
